FAERS Safety Report 5806251-3 (Version None)
Quarter: 2008Q3

REPORT INFORMATION
  Report Type: 
  Country: None (occurrence: None)
  Receive Date: 20080709
  Receipt Date: 20080709
  Transmission Date: 20090109
  Serious: Yes (Disabling)
  Sender: FDA-Public Use
  Company Number: None

PATIENT
  Sex: Male

DRUGS (3)
  1. MARCAINE HYDROCHLORIDE W/ EPINEPHRINE [Suspect]
     Indication: ARTHROPATHY
     Dosage: 275 ML  2 X 2 ML/HR  014
     Dates: start: 20040512, end: 20040517
  2. MARCAINE HYDROCHLORIDE W/ EPINEPHRINE [Suspect]
     Indication: ARTHROPATHY
     Dosage: 275 ML  2 X 2 ML/HR  014
     Dates: start: 20040922
  3. DONJOY PAIN MGMT [Concomitant]

REACTIONS (4)
  - CHONDROMALACIA [None]
  - OSTEOARTHRITIS [None]
  - PROCEDURAL SITE REACTION [None]
  - TREATMENT FAILURE [None]
